FAERS Safety Report 22152098 (Version 1)
Quarter: 2023Q1

REPORT INFORMATION
  Report Type: Spontaneous
  Country: US (occurrence: US)
  Receive Date: 20230329
  Receipt Date: 20230329
  Transmission Date: 20230418
  Serious: No
  Sender: FDA-Public Use
  Company Number: US-TEVA-2023-US-2867265

PATIENT
  Sex: Female

DRUGS (1)
  1. HYDROCHLOROTHIAZIDE [Suspect]
     Active Substance: HYDROCHLOROTHIAZIDE
     Indication: Hypertension
     Route: 065

REACTIONS (10)
  - Abdominal pain upper [Unknown]
  - Change of bowel habit [Unknown]
  - Hunger [Unknown]
  - Vision blurred [Unknown]
  - Photopsia [Not Recovered/Not Resolved]
  - Blood pressure increased [Unknown]
  - Gastrooesophageal reflux disease [Unknown]
  - Diarrhoea [Unknown]
  - Drug ineffective [Unknown]
  - Product prescribing issue [Unknown]
